FAERS Safety Report 7289503-2 (Version None)
Quarter: 2011Q1

REPORT INFORMATION
  Report Type: 
  Country: None (occurrence: None)
  Receive Date: 20110211
  Receipt Date: 20110201
  Transmission Date: 20110831
  Serious: Yes (Hospitalization)
  Sender: FDA-Public Use
  Company Number: FR-GENENTECH-307144

PATIENT
  Sex: Female
  Weight: 63 kg

DRUGS (10)
  1. OESCLIM [Suspect]
     Indication: HORMONE REPLACEMENT THERAPY
     Dosage: 2 UNK, 2/WEEK
     Route: 062
  2. OFLOXACIN [Concomitant]
     Indication: PRODUCT USED FOR UNKNOWN INDICATION
     Dosage: 400 MG, BID
     Route: 048
     Dates: start: 20100820, end: 20100823
  3. CORTANCYL [Suspect]
     Indication: RHEUMATOID ARTHRITIS
     Dosage: 1 UNK, QD
     Route: 048
  4. TAREG [Suspect]
     Indication: HYPERTENSION
     Dosage: 80 MG, UNK
     Route: 048
  5. ARAVA [Suspect]
     Indication: RHEUMATOID ARTHRITIS
     Dosage: 1 DF, QD
     Route: 048
  6. DAFALGAN [Suspect]
     Indication: RHEUMATOID ARTHRITIS
     Dosage: 1 DF, QD
     Route: 048
  7. MABTHERA [Suspect]
     Indication: RHEUMATOID ARTHRITIS
     Dosage: 1000 MG, X2
     Route: 042
     Dates: end: 20100701
  8. CALCIUM CARBONATE [Suspect]
     Indication: PRODUCT USED FOR UNKNOWN INDICATION
     Dosage: 1 DF, QD
     Route: 048
  9. ACTONEL [Suspect]
     Indication: OSTEOPOROSIS
     Dosage: UNK
     Route: 048
     Dates: start: 20060101, end: 20090101
  10. ZELITREX [Concomitant]
     Indication: ORAL HERPES
     Dosage: 500 MG, BID
     Route: 048
     Dates: start: 20100820, end: 20100827

REACTIONS (3)
  - OSTEONECROSIS [None]
  - PERIODONTAL DISEASE [None]
  - GINGIVITIS ULCERATIVE [None]
